FAERS Safety Report 4466897-4 (Version None)
Quarter: 2004Q4

REPORT INFORMATION
  Report Type: 
  Country: None (occurrence: None)
  Receive Date: 20041001
  Receipt Date: 20040921
  Transmission Date: 20050328
  Serious: Yes (Death)
  Sender: FDA-Public Use
  Company Number: 04H-163-0275152-00

PATIENT
  Age: 75 Year
  Sex: Female

DRUGS (3)
  1. MORPHINE SULFATE 50 MG/ML INJ W/SODIUM METABISULFITE, USP, FT GLASS [Suspect]
     Indication: POST PROCEDURAL PAIN
     Dosage: SEE IMAGE
     Route: 042
     Dates: start: 20040914, end: 20040914
  2. . [Concomitant]
  3. DIPHENHYDRAMINE HCL [Concomitant]

REACTIONS (4)
  - ARRHYTHMIA [None]
  - CARDIO-RESPIRATORY ARREST [None]
  - LOSS OF CONSCIOUSNESS [None]
  - POST PROCEDURAL COMPLICATION [None]
